FAERS Safety Report 4347628-5 (Version None)
Quarter: 2004Q2

REPORT INFORMATION
  Report Type: 
  Country: None (occurrence: None)
  Receive Date: 20040426
  Receipt Date: 20040426
  Transmission Date: 20050107
  Serious: No
  Sender: FDA-Public Use
  Company Number: None

PATIENT
  Age: 74 Year
  Sex: Female
  Weight: 72.5755 kg

DRUGS (1)
  1. ZICAM COLD REMEDY SWABS [Suspect]
     Indication: NASOPHARYNGITIS
     Dosage: USED AS DIRECTED ON LABEL

REACTIONS (2)
  - AGEUSIA [None]
  - ANOSMIA [None]
